FAERS Safety Report 17725915 (Version 4)
Quarter: 2020Q3

REPORT INFORMATION
  Report Type: Report from Study
  Country: US (occurrence: US)
  Receive Date: 20200429
  Receipt Date: 20200821
  Transmission Date: 20201102
  Serious: Yes (Other)
  Sender: FDA-Public Use
  Company Number: NVSC2020US115489

PATIENT
  Sex: Female

DRUGS (3)
  1. COSENTYX [Suspect]
     Active Substance: SECUKINUMAB
     Indication: PSORIASIS
     Dosage: 300 MG, Q4W
     Route: 058
  2. INSULIN [Concomitant]
     Active Substance: INSULIN NOS
     Indication: PRODUCT USED FOR UNKNOWN INDICATION
     Dosage: UNK
     Route: 065
     Dates: start: 2008
  3. COSENTYX [Suspect]
     Active Substance: SECUKINUMAB
     Indication: PSORIATIC ARTHROPATHY

REACTIONS (13)
  - Insomnia [Unknown]
  - Pruritus [Unknown]
  - Rash [Unknown]
  - Rhinorrhoea [Unknown]
  - Body temperature decreased [Unknown]
  - Chills [Unknown]
  - Psoriasis [Unknown]
  - Ear infection [Unknown]
  - Therapeutic product effect decreased [Unknown]
  - Psoriatic arthropathy [Unknown]
  - Nasopharyngitis [Unknown]
  - Hypersensitivity [Unknown]
  - Blood glucose decreased [Unknown]
